FAERS Safety Report 6221429-5 (Version None)
Quarter: 2009Q2

REPORT INFORMATION
  Report Type: 
  Country: None (occurrence: None)
  Receive Date: 20090608
  Receipt Date: 20090529
  Transmission Date: 20091009
  Serious: Yes (Hospitalization)
  Sender: FDA-Public Use
  Company Number: 2009US0128

PATIENT
  Age: 54 Year
  Sex: Female

DRUGS (18)
  1. SULAR [Suspect]
     Indication: CORONARY ARTERY DISEASE
  2. AMLODIPINE [Suspect]
  3. PEPTO BISMAL (BISMUTH SUBSALICYLATE) [Concomitant]
  4. GAS-X (DIMETICONE, ACTIVATED) [Concomitant]
  5. ATORVASTATIN CALCIUM [Concomitant]
  6. FUROSEMIDE (FUROSEMIDE [FUROSEMIDE]) [Concomitant]
  7. METOPROLOL SUCCINATE [Concomitant]
  8. IRBESARTAN [Concomitant]
  9. CLONIDINE [Concomitant]
  10. ASPIRIN [Concomitant]
  11. FENOFIBRATE [Concomitant]
  12. PIOGLITAZONE [Concomitant]
  13. GLIMEPIRIDE [Concomitant]
  14. NPH INSULIN [Concomitant]
  15. MULTI-VITAMINS [Concomitant]
  16. BUPROPION HCL [Concomitant]
  17. PROCRIT [Concomitant]
  18. FOLTX [Concomitant]

REACTIONS (6)
  - ABDOMINAL PAIN [None]
  - CHORIORETINOPATHY [None]
  - CORONARY ARTERY DISEASE [None]
  - NAUSEA [None]
  - NO THERAPEUTIC RESPONSE [None]
  - SMALL BOWEL ANGIOEDEMA [None]
